FAERS Safety Report 6804106-9 (Version None)
Quarter: 2010Q2

REPORT INFORMATION
  Report Type: 
  Country: None (occurrence: None)
  Receive Date: 20100628
  Receipt Date: 20090305
  Transmission Date: 20101027
  Serious: Yes (Hospitalization, Other)
  Sender: FDA-Public Use
  Company Number: US-PFIZER INC-2006140692

PATIENT
  Age: 76 Year
  Sex: Male
  Weight: 104 kg

DRUGS (2)
  1. SUTENT [Suspect]
     Dosage: 50 MG
  2. LIPITOR [Concomitant]

REACTIONS (3)
  - DISEASE PROGRESSION [None]
  - GASTRIC HAEMORRHAGE [None]
  - NEOPLASM MALIGNANT [None]
